FAERS Safety Report 5758957-2 (Version None)
Quarter: 2008Q2

REPORT INFORMATION
  Report Type: 
  Country: None (occurrence: None)
  Receive Date: 20080604
  Receipt Date: 20080526
  Transmission Date: 20081010
  Serious: Yes (Hospitalization)
  Sender: FDA-Public Use
  Company Number: JP-ASTRAZENECA-2008AP04097

PATIENT
  Age: 18082 Day
  Sex: Female

DRUGS (6)
  1. OMEPRAZOLE [Suspect]
     Indication: GASTROOESOPHAGEAL REFLUX DISEASE
     Route: 048
     Dates: start: 20071218
  2. LIVALO [Concomitant]
     Dates: start: 20070701
  3. PRAMIEL [Concomitant]
  4. GASMOTIN [Concomitant]
  5. SANMEL [Concomitant]
  6. MAGLAX [Concomitant]

REACTIONS (1)
  - LIVER DISORDER [None]
